FAERS Safety Report 5290576-7 (Version None)
Quarter: 2007Q2

REPORT INFORMATION
  Report Type: 
  Country: None (occurrence: None)
  Receive Date: 20070405
  Receipt Date: 20070405
  Transmission Date: 20071010
  Serious: Yes (Hospitalization)
  Sender: FDA-Public Use
  Company Number: None

PATIENT
  Sex: Female

DRUGS (2)
  1. ALBUTEROL SULFATE AND IPRATROPIUM BROMIDE [Suspect]
     Indication: DYSPNOEA
     Dosage: Q4H, PRN, NEBS
     Dates: start: 20061110
  2. PAROXETINE [Concomitant]

REACTIONS (1)
  - DYSPNOEA [None]
